FAERS Safety Report 11464251 (Version 1)
Quarter: 2015Q3

REPORT INFORMATION
  Report Type: Spontaneous
  Country: US (occurrence: US)
  Receive Date: 20150831
  Receipt Date: 20150831
  Transmission Date: 20151125
  Serious: No
  Sender: FDA-Public Use
  Company Number: US-ELI_LILLY_AND_COMPANY-US201107006715

PATIENT
  Sex: Male

DRUGS (5)
  1. CYMBALTA [Suspect]
     Active Substance: DULOXETINE HYDROCHLORIDE
     Indication: MAJOR DEPRESSION
     Dosage: UNK
     Dates: start: 200911
  2. NUVIGIL [Concomitant]
     Active Substance: ARMODAFINIL
     Dosage: 250 MG, QD
  3. XENAZINE [Concomitant]
     Active Substance: TETRABENAZINE
  4. ADDERALL [Concomitant]
     Active Substance: AMPHETAMINE ASPARTATE\AMPHETAMINE SULFATE\DEXTROAMPHETAMINE SACCHARATE\DEXTROAMPHETAMINE SULFATE
  5. NUVIGIL [Concomitant]
     Active Substance: ARMODAFINIL
     Dosage: 500 MG, QD

REACTIONS (5)
  - Depression [Unknown]
  - Tardive dyskinesia [Unknown]
  - Sedation [Unknown]
  - Psychomotor hyperactivity [Unknown]
  - Anxiety [Unknown]
